FAERS Safety Report 23516884 (Version 1)
Quarter: 2024Q1

REPORT INFORMATION
  Report Type: Spontaneous
  Country: JP (occurrence: JP)
  Receive Date: 20240213
  Receipt Date: 20240213
  Transmission Date: 20240409
  Serious: Yes (Other)
  Sender: FDA-Public Use
  Company Number: None

PATIENT
  Age: 85 Year
  Sex: Male

DRUGS (10)
  1. LINEZOLID [Suspect]
     Active Substance: LINEZOLID
     Indication: Mycobacterium abscessus infection
     Dosage: 600 MILLIGRAM, BID (EVERY 12 HOUR) (TWICE DAILY)
     Route: 048
  2. LINEZOLID [Suspect]
     Active Substance: LINEZOLID
     Indication: Graft infection
  3. AMIKACIN [Concomitant]
     Active Substance: AMIKACIN
     Indication: Mycobacterium abscessus infection
     Dosage: 300 MILLIGRAM, QD (EVERY 1 DAY) (EVERY OTHER DAY)
     Route: 065
  4. AMIKACIN [Concomitant]
     Active Substance: AMIKACIN
     Indication: Graft infection
  5. CILASTATIN SODIUM\IMIPENEM [Concomitant]
     Active Substance: CILASTATIN SODIUM\IMIPENEM
     Indication: Mycobacterium abscessus infection
     Dosage: 500 MILLIGRAM, QID (EVERY 6 HOUR) (FOUR TIMES A DAY)
     Route: 042
  6. CILASTATIN SODIUM\IMIPENEM [Concomitant]
     Active Substance: CILASTATIN SODIUM\IMIPENEM
     Indication: Graft infection
  7. CLARITHROMYCIN [Concomitant]
     Active Substance: CLARITHROMYCIN
     Indication: Mycobacterium abscessus infection
     Dosage: 400 MILLIGRAM, BID (EVERY 12 HOUR) (TWICE DAILY)
     Route: 048
  8. CLARITHROMYCIN [Concomitant]
     Active Substance: CLARITHROMYCIN
     Indication: Graft infection
  9. SITAFLOXACIN [Concomitant]
     Active Substance: SITAFLOXACIN
     Indication: Mycobacterium abscessus infection
     Dosage: 100 MILLIGRAM, OD (EVERY 1 DAY) (ONCE DAILY)
     Route: 048
  10. SITAFLOXACIN [Concomitant]
     Active Substance: SITAFLOXACIN
     Indication: Graft infection

REACTIONS (1)
  - Thrombocytopenia [Unknown]
